FAERS Safety Report 8538752-1 (Version None)
Quarter: 2012Q3

REPORT INFORMATION
  Report Type: 
  Country: None (occurrence: None)
  Receive Date: 20120726
  Receipt Date: 20110627
  Transmission Date: 20120928
  Serious: No
  Sender: FDA-Public Use
  Company Number: US-MYLANLABS-2011S1013386

PATIENT
  Age: 48 Year
  Sex: Male

DRUGS (2)
  1. TRAMADOL HYDROCHLORIDE [Suspect]
     Indication: PAIN
     Route: 048
     Dates: start: 20110620, end: 20110626
  2. OXYCODONE AND ACETAMINOPHEN [Concomitant]
     Indication: PAIN

REACTIONS (2)
  - FEELING ABNORMAL [None]
  - EUPHORIC MOOD [None]
